FAERS Safety Report 7690649-5 (Version None)
Quarter: 2011Q3

REPORT INFORMATION
  Report Type: 
  Country: None (occurrence: None)
  Receive Date: 20110812
  Receipt Date: 20110803
  Transmission Date: 20111222
  Serious: Yes (Hospitalization)
  Sender: FDA-Public Use
  Company Number: 2011001379

PATIENT
  Age: 68 Year
  Sex: Male

DRUGS (2)
  1. TARCEVA [Suspect]
     Indication: LUNG NEOPLASM MALIGNANT
     Dosage: 150 MG, UID/QD, ORAL 75 MG, UID/QD, ORAL
     Route: 048
     Dates: start: 20110312
  2. TARCEVA [Suspect]
     Dosage: 75 MG, UID/QD, ORAL
     Dates: start: 20110312

REACTIONS (3)
  - ADVERSE EVENT [None]
  - RASH [None]
  - PRURITUS [None]
